FAERS Safety Report 9071266 (Version 1)
Quarter: 2013Q1

REPORT INFORMATION
  Report Type: Spontaneous
  Country: US (occurrence: US)
  Receive Date: 20130206
  Receipt Date: 20130206
  Transmission Date: 20140127
  Serious: No
  Sender: FDA-Public Use
  Company Number: US-ALLERGAN-1209907US

PATIENT
  Age: 75 Year
  Sex: Male

DRUGS (6)
  1. RESTASIS? [Suspect]
     Indication: DRY EYE
     Dosage: UNK
     Route: 047
  2. REFRESH PLUS [Concomitant]
     Indication: DRY EYE
     Dosage: REPORTED AS 2 VIALS PER DAY
     Route: 047
  3. PLAQUENIL                          /00072601/ [Concomitant]
     Indication: IMMUNE SYSTEM DISORDER
     Dosage: UNK
  4. METHOTREXATE [Concomitant]
     Indication: IMMUNE SYSTEM DISORDER
     Dosage: UNK
  5. REMICADE [Concomitant]
     Indication: IMMUNE SYSTEM DISORDER
     Dosage: UNK
  6. COUMADIN                           /00014802/ [Concomitant]
     Indication: CARDIAC VALVE DISEASE
     Dosage: UNK

REACTIONS (2)
  - Vision blurred [Unknown]
  - Drug ineffective [Unknown]
